FAERS Safety Report 9205081 (Version 1)
Quarter: 2013Q2

REPORT INFORMATION
  Report Type: Spontaneous
  Country: US (occurrence: None)
  Receive Date: 20130401
  Receipt Date: 20130401
  Transmission Date: 20140414
  Serious: Yes (Other)
  Sender: FDA-Public Use
  Company Number: None

PATIENT
  Age: 54 Year
  Sex: Female
  Weight: 77.97 kg

DRUGS (4)
  1. DOCETAXEL [Suspect]
     Indication: LUNG CANCER METASTATIC
     Route: 042
     Dates: start: 20130315, end: 20130315
  2. SURAMIN [Suspect]
     Route: 042
     Dates: start: 20130315, end: 20130315
  3. DOCETAXEL [Concomitant]
  4. SURAMIN [Concomitant]

REACTIONS (4)
  - Myalgia [None]
  - Chest pain [None]
  - Chest discomfort [None]
  - Drug effect decreased [None]
